FAERS Safety Report 12783076 (Version 1)
Quarter: 2016Q3

REPORT INFORMATION
  Report Type: Spontaneous
  Country: US (occurrence: US)
  Receive Date: 20160926
  Receipt Date: 20160926
  Transmission Date: 20161109
  Serious: Yes (Other)
  Sender: FDA-Public Use
  Company Number: None

PATIENT
  Age: 67 Year
  Sex: Male
  Weight: 76.5 kg

DRUGS (1)
  1. HYOSCYAMINE 0.125 MG SUBL VIRTUS PHARMACEUTICALS [Suspect]
     Active Substance: HYOSCYAMINE SULFATE

REACTIONS (5)
  - Dysuria [None]
  - Pyrexia [None]
  - Pain [None]
  - Product use issue [None]
  - Device related infection [None]

NARRATIVE: CASE EVENT DATE: 20160802
